FAERS Safety Report 8135472-2 (Version None)
Quarter: 2012Q1

REPORT INFORMATION
  Report Type: 
  Country: None (occurrence: None)
  Receive Date: 20120214
  Receipt Date: 20120206
  Transmission Date: 20120608
  Serious: Yes (Hospitalization)
  Sender: FDA-Public Use
  Company Number: US-BAYER-2011-029240

PATIENT
  Age: 22 Year
  Sex: Female
  Weight: 57 kg

DRUGS (6)
  1. ALBUTEROL [Concomitant]
     Indication: ANTASTHMATIC DRUG LEVEL THERAPEUTIC
     Dosage: 2 PUFFS
     Route: 045
     Dates: start: 20030829, end: 20071031
  2. FEXOFENADINE HYDROCHLORIDE [Concomitant]
     Indication: ANTIALLERGIC THERAPY
     Dosage: 60 MG, UNK
     Route: 048
     Dates: start: 20071101
  3. DROSPIRENONE AND ETHINYL ESTRADIOL [Suspect]
     Indication: ORAL CONTRACEPTION
     Dosage: UNK
     Dates: start: 20030101, end: 20090101
  4. LEXAPRO [Concomitant]
     Indication: ANTIDEPRESSANT THERAPY
     Dosage: 10-20 MG TABLET
     Route: 048
     Dates: start: 20041008, end: 20080912
  5. LIBRAX [Concomitant]
     Indication: IRRITABLE BOWEL SYNDROME
     Dosage: DAILY
     Route: 048
     Dates: start: 20040714, end: 20080106
  6. YASMIN [Suspect]
     Indication: ORAL CONTRACEPTION
     Dosage: UNK
     Dates: start: 20030101, end: 20091101

REACTIONS (5)
  - PAIN [None]
  - EMOTIONAL DISTRESS [None]
  - ABDOMINAL PAIN UPPER [None]
  - CHOLECYSTITIS [None]
  - ANXIETY [None]
